FAERS Safety Report 20511075 (Version 1)
Quarter: 2022Q1

REPORT INFORMATION
  Report Type: Spontaneous
  Country: US (occurrence: US)
  Receive Date: 20220224
  Receipt Date: 20220224
  Transmission Date: 20220423
  Serious: No
  Sender: FDA-Public Use
  Company Number: US-Ipsen Biopharmaceuticals, Inc.-2022-04389

PATIENT
  Age: 61 Year
  Sex: Female

DRUGS (5)
  1. DYSPORT [Suspect]
     Active Substance: ABOBOTULINUMTOXINA
     Indication: Skin wrinkling
     Dosage: TOTAL UNITS INJECTED: 135 UNITS
     Route: 065
     Dates: start: 20220207, end: 20220207
  2. DYSPORT [Suspect]
     Active Substance: ABOBOTULINUMTOXINA
     Indication: Skin wrinkling
  3. DYSPORT [Suspect]
     Active Substance: ABOBOTULINUMTOXINA
     Indication: Off label use
  4. ALTRENO LOTION [Concomitant]
     Indication: Product used for unknown indication
     Dates: start: 2021
  5. ARAZLO LOTION [Concomitant]
     Indication: Product used for unknown indication
     Dates: start: 2021

REACTIONS (3)
  - Hordeolum [Recovering/Resolving]
  - Off label use [Unknown]
  - Product preparation error [Unknown]

NARRATIVE: CASE EVENT DATE: 20220207
